FAERS Safety Report 26071681 (Version 1)
Quarter: 2025Q4

REPORT INFORMATION
  Report Type: Spontaneous
  Country: US (occurrence: US)
  Receive Date: 20251120
  Receipt Date: 20251120
  Transmission Date: 20260118
  Serious: No
  Sender: DR REDDYS
  Company Number: US-MLMSERVICE-20251017-PI678943-00246-3

PATIENT
  Age: 80 Year
  Sex: Female

DRUGS (1)
  1. OLANZAPINE [Suspect]
     Active Substance: OLANZAPINE
     Indication: Product used for unknown indication
     Dosage: BEFORE MEALS FOR SEVERAL DAY
     Route: 048

REACTIONS (2)
  - Sedation [Unknown]
  - Drug ineffective [Unknown]
